FAERS Safety Report 7063813-6 (Version None)
Quarter: 2010Q4

REPORT INFORMATION
  Report Type: 
  Country: None (occurrence: None)
  Receive Date: 20101026
  Receipt Date: 20100830
  Transmission Date: 20110411
  Serious: No
  Sender: FDA-Public Use
  Company Number: US-ABBOTT-10P-163-0668557-00

PATIENT
  Sex: Female
  Weight: 68.554 kg

DRUGS (5)
  1. LUPRON DEPOT [Suspect]
     Indication: ENDOMETRIOSIS
  2. NORETHIN [Concomitant]
     Indication: CONTRACEPTION
  3. LISINOPRIL [Concomitant]
     Indication: HYPERTENSION
  4. IBUPROFEN [Concomitant]
     Indication: PRODUCT USED FOR UNKNOWN INDICATION
  5. ZANTAC [Concomitant]
     Indication: DYSPEPSIA

REACTIONS (1)
  - VAGINAL HAEMORRHAGE [None]
